FAERS Safety Report 7049787-2 (Version None)
Quarter: 2010Q4

REPORT INFORMATION
  Report Type: 
  Country: None (occurrence: None)
  Receive Date: 20101018
  Receipt Date: 20101012
  Transmission Date: 20110411
  Serious: Yes (Death, Other)
  Sender: FDA-Public Use
  Company Number: GB-SANOFI-AVENTIS-2010SA046878

PATIENT
  Age: 91 Year
  Sex: Female

DRUGS (16)
  1. LANTUS [Suspect]
     Route: 058
     Dates: end: 20090513
  2. LANTUS [Interacting]
     Route: 058
     Dates: end: 20090513
  3. LANTUS [Interacting]
     Route: 058
     Dates: start: 20100303
  4. LANTUS [Interacting]
     Route: 058
     Dates: start: 20100303
  5. DOXYCYCLINE [Interacting]
     Indication: INFECTION
     Route: 048
     Dates: start: 20090422, end: 20100422
  6. DOXYCYCLINE [Interacting]
     Route: 048
     Dates: start: 20090423
  7. FUROSEMIDE [Concomitant]
     Dates: start: 20060710
  8. FUROSEMIDE [Concomitant]
     Indication: HYPERTENSION
     Dates: start: 20060710
  9. DIGOXIN [Concomitant]
     Route: 048
     Dates: start: 20031107
  10. DIGOXIN [Concomitant]
     Indication: HYPERTENSION
     Route: 048
     Dates: start: 20031107
  11. SPIRONOLACTONE [Concomitant]
     Route: 048
     Dates: start: 20031107
  12. SPIRONOLACTONE [Concomitant]
     Indication: HYPERTENSION
     Route: 048
     Dates: start: 20031107
  13. ASPIRIN [Concomitant]
     Route: 048
     Dates: start: 20040419
  14. ASPIRIN [Concomitant]
     Indication: HYPERTENSION
     Route: 048
     Dates: start: 20040419
  15. PAROXETINE HCL [Concomitant]
     Indication: ANXIETY
     Route: 048
     Dates: start: 20031107
  16. PAROXETINE HCL [Concomitant]
     Indication: DEPRESSION
     Route: 048
     Dates: start: 20031107

REACTIONS (6)
  - APHASIA [None]
  - ASTHENIA [None]
  - DRUG INTERACTION [None]
  - HYPERGLYCAEMIA [None]
  - HYPOGLYCAEMIA [None]
  - MOBILITY DECREASED [None]
